FAERS Safety Report 4647714-6 (Version None)
Quarter: 2005Q2

REPORT INFORMATION
  Report Type: 
  Country: None (occurrence: None)
  Receive Date: 20050428
  Receipt Date: 20050418
  Transmission Date: 20051028
  Serious: Yes (Other)
  Sender: FDA-Public Use
  Company Number: AU-BRISTOL-MYERS SQUIBB COMPANY-12936282

PATIENT
  Sex: Female

DRUGS (6)
  1. HYDREA [Suspect]
     Indication: PLATELET COUNT INCREASED
     Route: 048
     Dates: start: 20050414, end: 20050415
  2. CARTIA XT [Concomitant]
     Route: 048
  3. NORVASC [Concomitant]
     Route: 048
  4. AVAPRO [Concomitant]
     Route: 048
  5. OMEGA 3 FISH OIL [Concomitant]
     Route: 048
  6. OSTEOEZE [Concomitant]
     Route: 048

REACTIONS (3)
  - DYSPNOEA [None]
  - PLATELET COUNT INCREASED [None]
  - SOMNOLENCE [None]
